FAERS Safety Report 5280161-5 (Version None)
Quarter: 2007Q1

REPORT INFORMATION
  Report Type: 
  Country: None (occurrence: None)
  Receive Date: 20061229
  Receipt Date: 20060724
  Transmission Date: 20070707
  Serious: Yes (Other)
  Sender: FDA-Public Use
  Company Number: 2006UW14964

PATIENT
  Age: 80 Year
  Sex: Female
  Weight: 79.378 kg

DRUGS (6)
  1. CRESTOR [Suspect]
     Indication: ANGIOPLASTY
     Dosage: 10 MG PO
     Route: 048
  2. CRESTOR [Suspect]
     Indication: MEDICAL DEVICE CHANGE
     Dosage: 10 MG PO
     Route: 048
  3. PLAVIX [Concomitant]
  4. CARDIZEM [Concomitant]
  5. ASPIRIN [Concomitant]
  6. NITROGLYCERIN [Concomitant]

REACTIONS (2)
  - CHEST DISCOMFORT [None]
  - STOMACH DISCOMFORT [None]
